FAERS Safety Report 17809232 (Version 1)
Quarter: 2020Q2

REPORT INFORMATION
  Report Type: Spontaneous
  Country: JP (occurrence: JP)
  Receive Date: 20200520
  Receipt Date: 20200520
  Transmission Date: 20200714
  Serious: Yes (Other)
  Sender: FDA-Public Use
  Company Number: JP-SA-2018SA181013

PATIENT
  Age: 69 Year
  Sex: Male

DRUGS (7)
  1. FLUOROURACIL 5 FU [Concomitant]
     Active Substance: FLUOROURACIL
     Dosage: UNK,CONTINUOUS INFUSION
     Route: 042
  2. ELPLAT [Suspect]
     Active Substance: OXALIPLATIN
     Dosage: UNK UNK, QD
     Route: 042
  3. CAMPTO CONC [Suspect]
     Active Substance: IRINOTECAN HYDROCHLORIDE
     Indication: PANCREATIC CARCINOMA
     Dosage: UNK UNK, QD
     Route: 041
  4. FLUOROURACIL 5 FU [Concomitant]
     Active Substance: FLUOROURACIL
     Dosage: UNK, BOLUS
     Route: 040
  5. ELPLAT [Suspect]
     Active Substance: OXALIPLATIN
     Indication: PANCREATIC CARCINOMA
     Dosage: UNK UNK, QD
     Route: 041
  6. CAMPTO CONC [Suspect]
     Active Substance: IRINOTECAN HYDROCHLORIDE
     Dosage: UNK, QD
     Route: 042
  7. CALCIUM LEVOFOLINATE [Concomitant]
     Active Substance: LEVOLEUCOVORIN CALCIUM

REACTIONS (6)
  - Disseminated intravascular coagulation [Unknown]
  - Subdiaphragmatic abscess [Unknown]
  - Blood loss anaemia [Unknown]
  - Septic shock [Unknown]
  - Arterial haemorrhage [Unknown]
  - Splenic abscess [Unknown]
